FAERS Safety Report 10700680 (Version 2)
Quarter: 2015Q1

REPORT INFORMATION
  Report Type: Report from Study
  Country: JP (occurrence: JP)
  Receive Date: 20150109
  Receipt Date: 20150201
  Transmission Date: 20150721
  Serious: Yes (Other)
  Sender: FDA-Public Use
  Company Number: JP-MYLANLABS-2014M1016010

PATIENT

DRUGS (3)
  1. CISPLATIN. [Suspect]
     Active Substance: CISPLATIN
     Indication: PERITONEAL MESOTHELIOMA MALIGNANT
     Dosage: 25 MG/M2/D ON DAY 1, REPEATED EVERY 3 WEEKS
     Route: 041
  2. PEMETREXED [Suspect]
     Active Substance: PEMETREXED
     Indication: PERITONEAL MESOTHELIOMA MALIGNANT
     Dosage: 500 MG/M2/D ON DAY 1, REPEATED EVERY 3W
     Route: 041
  3. FOLIC ACID. [Concomitant]
     Active Substance: FOLIC ACID
     Dosage: 1000MG DAILY 1-2W PRIOR TO PEMETREXED UNTIL 3W AFTER PEMETREXED STOPPED
     Route: 048

REACTIONS (5)
  - Neutropenia [Unknown]
  - Glomerular filtration rate decreased [Unknown]
  - Leukopenia [Unknown]
  - Ascites [Unknown]
  - Anaemia [Unknown]
